FAERS Safety Report 21274412 (Version 2)
Quarter: 2022Q3

REPORT INFORMATION
  Report Type: Spontaneous
  Country: US (occurrence: US)
  Receive Date: 20220831
  Receipt Date: 20220831
  Transmission Date: 20221027
  Serious: Yes (Disabling)
  Sender: FDA-Public Use
  Company Number: US-AMERICAN REGENT INC-2022000669

PATIENT
  Age: 40 Year
  Sex: Female
  Weight: 71.202 kg

DRUGS (3)
  1. FERRIC CARBOXYMALTOSE [Suspect]
     Active Substance: FERRIC CARBOXYMALTOSE
     Indication: Iron deficiency anaemia
     Dosage: 750 MILLIGRAM IN 500 ML OF 0.9% NS, SINGLE
     Route: 042
     Dates: start: 20200304, end: 20200304
  2. WARFARIN [Concomitant]
     Active Substance: WARFARIN
     Indication: Pulmonary embolism
     Dosage: UNK
     Route: 048
     Dates: start: 2011
  3. AMINO ACIDS\CARBOHYDRATES\MINERALS\VITAMINS [Concomitant]
     Active Substance: AMINO ACIDS\CARBOHYDRATES\MINERALS\VITAMINS
     Indication: Impaired gastric emptying
     Dosage: 6 DAYS A WEEK
     Route: 051

REACTIONS (15)
  - Pain [Recovering/Resolving]
  - Tinnitus [Recovering/Resolving]
  - Myalgia [Not Recovered/Not Resolved]
  - Hypophosphataemia [Not Recovered/Not Resolved]
  - Dizziness [Recovering/Resolving]
  - Headache [Recovering/Resolving]
  - Arthralgia [Not Recovered/Not Resolved]
  - Malaise [Recovering/Resolving]
  - Body temperature decreased [Recovering/Resolving]
  - Feeling abnormal [Recovering/Resolving]
  - Body temperature increased [Recovering/Resolving]
  - Anhedonia [Not Recovered/Not Resolved]
  - Emotional distress [Not Recovered/Not Resolved]
  - Anxiety [Not Recovered/Not Resolved]
  - Product quality issue [Unknown]

NARRATIVE: CASE EVENT DATE: 20200307
